FAERS Safety Report 11346437 (Version 1)
Quarter: 2015Q3

REPORT INFORMATION
  Report Type: Spontaneous
  Country: US (occurrence: US)
  Receive Date: 20150803
  Receipt Date: 20150803
  Transmission Date: 20151125
  Serious: No
  Sender: FDA-Public Use
  Company Number: US-ELI_LILLY_AND_COMPANY-US201010000126

PATIENT
  Age: 25 Year
  Sex: Female

DRUGS (1)
  1. ZYPREXA [Suspect]
     Active Substance: OLANZAPINE
     Indication: AUTISM
     Dosage: 1.25 MG, UNK

REACTIONS (2)
  - Constipation [Unknown]
  - Off label use [Recovered/Resolved]
